FAERS Safety Report 22175863 (Version 1)
Quarter: 2023Q2

REPORT INFORMATION
  Report Type: Spontaneous
  Country: FR (occurrence: FR)
  Receive Date: 20230405
  Receipt Date: 20230405
  Transmission Date: 20230722
  Serious: Yes (Disabling, Congenital Anomaly, Other)
  Sender: FDA-Public Use
  Company Number: FR-MYLANLABS-2023M1035477

PATIENT
  Age: 36 Week
  Sex: Male
  Weight: 27.5 kg

DRUGS (5)
  1. DEPAKENE [Suspect]
     Active Substance: VALPROIC ACID
     Indication: Epilepsy
     Dosage: 2 DOSAGE FORM, QD
     Route: 065
     Dates: start: 20060326, end: 200604
  2. FOLIC ACID [Concomitant]
     Active Substance: FOLIC ACID
     Dosage: UNK
     Route: 065
     Dates: start: 20060410
  3. VITAMIN B12 [Concomitant]
     Active Substance: CYANOCOBALAMIN
     Dosage: UNK
     Route: 065
  4. LAMICTAL [Concomitant]
     Active Substance: LAMOTRIGINE
     Dosage: UNK
     Route: 065
     Dates: start: 20060410, end: 20060425
  5. KEPPRA [Concomitant]
     Active Substance: LEVETIRACETAM
     Dosage: UNK
     Route: 065
     Dates: start: 20060425, end: 20060505

REACTIONS (37)
  - Respiratory distress [Unknown]
  - Foot deformity [Unknown]
  - Plagiocephaly [Unknown]
  - Hypotonia [Unknown]
  - Atrial septal defect [Not Recovered/Not Resolved]
  - Cerebral atrophy [Unknown]
  - Knee deformity [Unknown]
  - Strabismus [Not Recovered/Not Resolved]
  - Ear infection [Not Recovered/Not Resolved]
  - Intellectual disability [Not Recovered/Not Resolved]
  - Psychomotor retardation [Not Recovered/Not Resolved]
  - Fine motor skill dysfunction [Unknown]
  - Developmental delay [Not Recovered/Not Resolved]
  - Anxiety [Unknown]
  - Behaviour disorder [Unknown]
  - Enuresis [Not Recovered/Not Resolved]
  - Hypertonic bladder [Not Recovered/Not Resolved]
  - Joint hyperextension [Unknown]
  - Nasopharyngitis [Recovered/Resolved]
  - Autism spectrum disorder [Not Recovered/Not Resolved]
  - Coordination abnormal [Unknown]
  - Slow response to stimuli [Unknown]
  - Amblyopia [Unknown]
  - Foetal anticonvulsant syndrome [Unknown]
  - Cardiac murmur [Unknown]
  - Disturbance in attention [Unknown]
  - Learning disorder [Unknown]
  - Tendon rupture [Unknown]
  - Memory impairment [Unknown]
  - Language disorder [Unknown]
  - Disorientation [Unknown]
  - Hyperacusis [Unknown]
  - Visual acuity reduced [Unknown]
  - Constipation [Recovered/Resolved]
  - Fatigue [Not Recovered/Not Resolved]
  - Dysmorphism [Not Recovered/Not Resolved]
  - Foetal exposure during pregnancy [Recovered/Resolved]

NARRATIVE: CASE EVENT DATE: 20060326
